FAERS Safety Report 16309910 (Version 1)
Quarter: 2019Q2

REPORT INFORMATION
  Report Type: Spontaneous
  Country: US (occurrence: US)
  Receive Date: 20190408
  Receipt Date: 20190408
  Transmission Date: 20190711
  Serious: No
  Sender: FDA-Public Use
  Company Number: None

PATIENT
  Age: 70 Year
  Sex: Male
  Weight: 73.48 kg

DRUGS (1)
  1. NETARSUDIL. [Suspect]
     Active Substance: NETARSUDIL
     Indication: GLAUCOMA
     Route: 047
     Dates: start: 20190213, end: 20190320

REACTIONS (3)
  - Influenza like illness [None]
  - Depression [None]
  - Insomnia [None]

NARRATIVE: CASE EVENT DATE: 20190307
